FAERS Safety Report 6657064-4 (Version None)
Quarter: 2010Q1

REPORT INFORMATION
  Report Type: 
  Country: None (occurrence: None)
  Receive Date: 20100330
  Receipt Date: 20100318
  Transmission Date: 20100710
  Serious: Yes (Hospitalization)
  Sender: FDA-Public Use
  Company Number: FR-WYE-H12863710

PATIENT
  Sex: Male
  Weight: 68 kg

DRUGS (10)
  1. NERATINIB [Suspect]
     Indication: NEOPLASM
     Route: 048
     Dates: start: 20091214, end: 20100104
  2. NERATINIB [Suspect]
     Route: 048
     Dates: start: 20100119
  3. CARDEGIC [Concomitant]
     Indication: THROMBOSIS
     Dosage: UNKNOWN
     Dates: start: 20080401
  4. CARDEGIC [Concomitant]
     Indication: PROPHYLAXIS
  5. LEVOTHYROXINE SODIUM [Concomitant]
     Indication: THYROID CANCER
     Dosage: 150 MCG FREQUENCY NOT SPECIFIED
     Dates: start: 20070101
  6. LEVOTHYROXINE SODIUM [Concomitant]
     Indication: HYPOTHYROIDISM
  7. TEMSIROLIMUS [Suspect]
     Indication: NEOPLASM
     Route: 042
     Dates: start: 20091214, end: 20100104
  8. TEMSIROLIMUS [Suspect]
     Route: 042
     Dates: start: 20100119
  9. HYDROCORTISONE [Concomitant]
     Indication: RASH PAPULAR
     Dosage: UNKNOWN
     Dates: start: 20020101
  10. HYDROCORTISONE [Concomitant]
     Indication: SKIN DISORDER

REACTIONS (1)
  - RHABDOMYOLYSIS [None]
